FAERS Safety Report 13708282 (Version 1)
Quarter: 2017Q2

REPORT INFORMATION
  Report Type: Spontaneous
  Country: US (occurrence: US)
  Receive Date: 20170630
  Receipt Date: 20170630
  Transmission Date: 20170830
  Serious: Yes (Other)
  Sender: FDA-Public Use
  Company Number: US-SUNOVION-2017SUN002778

PATIENT
  Sex: Female
  Weight: 120.18 kg

DRUGS (3)
  1. LATUDA [Suspect]
     Active Substance: LURASIDONE HYDROCHLORIDE
     Indication: SCHIZOPHRENIA
     Dosage: 60 MG, QD
     Route: 048
     Dates: start: 2015, end: 201706
  2. LATUDA [Suspect]
     Active Substance: LURASIDONE HYDROCHLORIDE
     Dosage: 80 MG, QD
     Route: 048
     Dates: start: 201706
  3. WELLBUTRIN [Suspect]
     Active Substance: BUPROPION HYDROCHLORIDE
     Dosage: 150 NG, QD
     Route: 048

REACTIONS (3)
  - Hypersomnia [Unknown]
  - Schizophrenia [Unknown]
  - Weight increased [Unknown]
